FAERS Safety Report 11394686 (Version 1)
Quarter: 2015Q3

REPORT INFORMATION
  Report Type: Report from Study
  Country: US (occurrence: None)
  Receive Date: 20150817
  Receipt Date: 20150817
  Transmission Date: 20151125
  Serious: Yes (Hospitalization, Disabling)
  Sender: FDA-Public Use
  Company Number: US-002259

PATIENT
  Sex: Female

DRUGS (2)
  1. GATTEX [Suspect]
     Active Substance: TEDUGLUTIDE\WATER
     Indication: SHORT-BOWEL SYNDROME
     Dosage: (DF SUBCUTANEOUS)
     Route: 058
     Dates: start: 20150511, end: 201507
  2. SOLUTIONS FOR PARENTERAL NUTRITION [Concomitant]
     Active Substance: AMINO ACIDS\DEXTROSE\ELECTROLYTES NOS

REACTIONS (13)
  - Headache [None]
  - Muscle spasms [None]
  - Gastrooesophageal reflux disease [None]
  - Nausea [None]
  - Peripheral swelling [None]
  - Chills [None]
  - Therapy cessation [None]
  - Intestinal obstruction [None]
  - Anaemia [None]
  - Diarrhoea [None]
  - Crohn^s disease [None]
  - Vomiting [None]
  - Pain [None]

NARRATIVE: CASE EVENT DATE: 2015
